FAERS Safety Report 8976391 (Version 1)
Quarter: 2012Q4

REPORT INFORMATION
  Report Type: 
  Country: US (occurrence: US)
  Receive Date: 20121219
  Receipt Date: 20121219
  Transmission Date: 20130627
  Serious: No
  Sender: FDA-Public Use
  Company Number: US-AMGEN-USASP2012063057

PATIENT
  Age: 66 Year
  Sex: Male

DRUGS (2)
  1. XGEVA [Suspect]
     Indication: PRODUCT USED FOR UNKNOWN INDICATION
     Dosage: 120 mg, q4wk
  2. CALTRATE                           /00944201/ [Concomitant]
     Indication: HYPOCALCAEMIA

REACTIONS (2)
  - Hypocalcaemia [Unknown]
  - Vitamin D decreased [Unknown]
